FAERS Safety Report 8172064-3 (Version None)
Quarter: 2012Q1

REPORT INFORMATION
  Report Type: 
  Country: None (occurrence: None)
  Receive Date: 20120228
  Receipt Date: 20120227
  Transmission Date: 20120608
  Serious: Yes (Hospitalization)
  Sender: FDA-Public Use
  Company Number: JP-ABBOTT-12P-087-0907619-00

PATIENT
  Age: 32 Year
  Sex: Female

DRUGS (2)
  1. CLARITHROMYCIN [Suspect]
     Indication: PRODUCT USED FOR UNKNOWN INDICATION
  2. COLCHICINE [Interacting]
     Indication: PRODUCT USED FOR UNKNOWN INDICATION

REACTIONS (2)
  - DRUG INTERACTION [None]
  - SEPSIS [None]
